FAERS Safety Report 8879832 (Version 1)
Quarter: 2012Q4

REPORT INFORMATION
  Report Type: 
  Country: US (occurrence: US)
  Receive Date: 20121101
  Receipt Date: 20121101
  Transmission Date: 20130627
  Serious: Yes (Hospitalization)
  Sender: FDA-Public Use
  Company Number: US-BRISTOL-MYERS SQUIBB COMPANY-17064395

PATIENT
  Age: 41 Year
  Sex: Female

DRUGS (5)
  1. ABILIFY [Suspect]
     Indication: BIPOLAR DISORDER
     Dosage: initiated 5mg for 10 days and 15 mg for 3 weeks
  2. ZOLOFT [Concomitant]
  3. TRAZODONE HCL [Concomitant]
  4. SINGULAIR [Concomitant]
  5. FLONASE [Concomitant]

REACTIONS (3)
  - Pancreatitis [Unknown]
  - Herpes zoster [Unknown]
  - Pain [Unknown]
